FAERS Safety Report 7137609-0 (Version None)
Quarter: 2010Q4

REPORT INFORMATION
  Report Type: 
  Country: None (occurrence: None)
  Receive Date: 20101206
  Receipt Date: 20101126
  Transmission Date: 20110411
  Serious: Yes (Other)
  Sender: FDA-Public Use
  Company Number: JP-BRISTOL-MYERS SQUIBB COMPANY-15359821

PATIENT
  Age: 39 Year
  Sex: Female

DRUGS (1)
  1. ABILIFY [Suspect]
     Indication: SCHIZOPHRENIA
     Dosage: 12MG FROM 2009-6OCT10, 9MG 7-20OCT10 TD:14DAYS,6MG:21OCT-10NOV TD:21DAYS,3MG 11NOV10-ONGOING
     Route: 048
     Dates: start: 20090101

REACTIONS (2)
  - ABORTION [None]
  - PREGNANCY [None]
